FAERS Safety Report 9524672 (Version 1)
Quarter: 2013Q3

REPORT INFORMATION
  Report Type: Report from Study
  Country: US (occurrence: US)
  Receive Date: 20130916
  Receipt Date: 20130916
  Transmission Date: 20140515
  Serious: Yes (Other)
  Sender: FDA-Public Use
  Company Number: PHEH2013US019160

PATIENT
  Age: 74 Year
  Sex: Female

DRUGS (1)
  1. EXELON PATCH [Suspect]
     Indication: DEMENTIA ALZHEIMER^S TYPE
     Dosage: UNK UKN, UNK
     Route: 062
     Dates: start: 20091210, end: 20130615

REACTIONS (6)
  - Paranoia [Not Recovered/Not Resolved]
  - Abasia [Not Recovered/Not Resolved]
  - Fall [Not Recovered/Not Resolved]
  - Confusional state [Not Recovered/Not Resolved]
  - Fatigue [Not Recovered/Not Resolved]
  - Anxiety [Not Recovered/Not Resolved]
